FAERS Safety Report 8168964-0 (Version None)
Quarter: 2012Q1

REPORT INFORMATION
  Report Type: 
  Country: None (occurrence: None)
  Receive Date: 20120227
  Receipt Date: 20120222
  Transmission Date: 20120608
  Serious: Yes (Hospitalization)
  Sender: FDA-Public Use
  Company Number: HU-PFIZER INC-2007088709

PATIENT
  Age: 19 Year
  Sex: Male

DRUGS (8)
  1. FAMOTIDINE [Concomitant]
     Route: 048
  2. TESTOSTERONE [Concomitant]
     Route: 048
  3. ALLOPURINOL [Concomitant]
     Route: 048
  4. HYDROCORTISONE [Concomitant]
     Route: 048
  5. SOMATROPIN [Suspect]
     Indication: HYPOPITUITARISM
     Dosage: 0.5 MG, 1X/DAY
     Route: 058
     Dates: start: 20061012, end: 20071010
  6. LEVOTHYROXINE SODIUM [Concomitant]
     Route: 048
  7. CARBAMAZEPINE [Concomitant]
     Route: 048
  8. DESMOPRESSIN ACETATE [Concomitant]
     Route: 048

REACTIONS (2)
  - CRANIOPHARYNGIOMA [None]
  - NEOPLASM RECURRENCE [None]
